FAERS Safety Report 15231371 (Version 1)
Quarter: 2018Q3

REPORT INFORMATION
  Report Type: Spontaneous
  Country: US (occurrence: US)
  Receive Date: 20180708
  Receipt Date: 20180708
  Transmission Date: 20181010
  Serious: Yes (Other)
  Sender: FDA-Public Use
  Company Number: None

PATIENT
  Age: 60 Year
  Sex: Female
  Weight: 71.1 kg

DRUGS (1)
  1. FLUTICASONE PROPIONATE. [Suspect]
     Active Substance: FLUTICASONE PROPIONATE

REACTIONS (5)
  - Gastrooesophageal reflux disease [None]
  - Product use issue [None]
  - Headache [None]
  - Oropharyngeal pain [None]
  - Product contamination physical [None]

NARRATIVE: CASE EVENT DATE: 20170301
